FAERS Safety Report 10060782 (Version 1)
Quarter: 2014Q2

REPORT INFORMATION
  Report Type: Spontaneous
  Country: SE (occurrence: SE)
  Receive Date: 20140404
  Receipt Date: 20140404
  Transmission Date: 20141212
  Serious: Yes (Other)
  Sender: FDA-Public Use
  Company Number: CHPA2013SE005357

PATIENT
  Sex: 0

DRUGS (1)
  1. OTRIVIN [Suspect]
     Dosage: UNK,UNK
     Route: 045

REACTIONS (1)
  - Drug abuse [Unknown]
